FAERS Safety Report 25112377 (Version 1)
Quarter: 2025Q1

REPORT INFORMATION
  Report Type: Spontaneous
  Country: US (occurrence: US)
  Receive Date: 20250324
  Receipt Date: 20250324
  Transmission Date: 20250409
  Serious: No
  Sender: UCB
  Company Number: US-UCBSA-2024055851

PATIENT
  Sex: Female

DRUGS (2)
  1. BRIVIACT [Suspect]
     Active Substance: BRIVARACETAM
     Indication: Epilepsy
     Dosage: 75 MILLIGRAM, 2X/DAY (BID)
  2. VITAMIN B6 [Suspect]
     Active Substance: PYRIDOXINE HYDROCHLORIDE
     Indication: Irritability
     Dosage: 3X/WEEK
     Dates: start: 20240813

REACTIONS (4)
  - Irritability [Not Recovered/Not Resolved]
  - Aggression [Not Recovered/Not Resolved]
  - Anger [Not Recovered/Not Resolved]
  - Gastrointestinal disorder [Not Recovered/Not Resolved]

NARRATIVE: CASE EVENT DATE: 20240101
